FAERS Safety Report 11236052 (Version 2)
Quarter: 2015Q3

REPORT INFORMATION
  Report Type: Spontaneous
  Country: US (occurrence: US)
  Receive Date: 20150702
  Receipt Date: 20150729
  Transmission Date: 20151125
  Serious: Yes (Hospitalization, Other)
  Sender: FDA-Public Use
  Company Number: US-GILEAD-2015-0161146

PATIENT
  Age: 61 Year
  Sex: Male
  Weight: 74.38 kg

DRUGS (1)
  1. HARVONI [Suspect]
     Active Substance: LEDIPASVIR\SOFOSBUVIR
     Indication: HEPATITIS C
     Dosage: UNK
     Route: 065
     Dates: start: 20150424

REACTIONS (5)
  - Pyrexia [Unknown]
  - Vitamin D deficiency [Unknown]
  - Rash [Unknown]
  - Blood bilirubin increased [Unknown]
  - Tick-borne fever [Unknown]

NARRATIVE: CASE EVENT DATE: 20150622
